FAERS Safety Report 9826811 (Version 1)
Quarter: 2013Q4

REPORT INFORMATION
  Report Type: Spontaneous
  Country: GB (occurrence: None)
  Receive Date: 20131112
  Receipt Date: 20131112
  Transmission Date: 20140711
  Serious: Yes (Other)
  Sender: FDA-Public Use
  Company Number: E2B_00001214

PATIENT
  Age: 70 Year
  Sex: Male
  Weight: 99 kg

DRUGS (17)
  1. LISINOPRIL [Suspect]
     Indication: PRODUCT USED FOR UNKNOWN INDICATION
     Dates: start: 20121210
  2. SIMVASTATIN (UNKNOWN) (SIMVASTATIN) UNK, UNKUNK [Concomitant]
  3. IPRATROPIUM BROMIDE (UNKNOWN) [Concomitant]
  4. FLUTICASONE (UNKNOWN) [Concomitant]
  5. PREDNISOLONE (UNKNOWN) [Concomitant]
  6. AMOXICILLIN (UNKNOWN) [Concomitant]
  7. TRAVOPOST (UNKNOWN) [Concomitant]
  8. CETIRIZINE (UNKNOWN) [Concomitant]
  9. PARACETAMOL (UNKNOWN) [Concomitant]
  10. GABAPENTIN (UNKNOWN) [Concomitant]
  11. BUDESONIDE (UNKNOWN) [Concomitant]
  12. CHLORHEXIDINE GLUCONATE (UNKNOWN) [Concomitant]
  13. SALBUTAMOL + SALBUTAMOL BASE + SALBUTAMOL SULPHATE + SALBUTAMOL SULPHATE MICRONISED (VENTOLIN) (UNKNOWN)? [Concomitant]
  14. LANSOPRAZOLE (UNKNOWN) [Concomitant]
  15. CLARITHROMYCIN (UNKNOWN) [Concomitant]
  16. BENDROFLUMETHIAZIDE (UNKNOWN) [Concomitant]
  17. MAGNESIUM HYDROXIDE + DRIED ALUMINIUM HYDROXIDE (CO-MAGALDROX) (UNKNOWN) [Concomitant]

REACTIONS (1)
  - Angioedema [None]
